FAERS Safety Report 5933418-6 (Version None)
Quarter: 2008Q4

REPORT INFORMATION
  Report Type: 
  Country: None (occurrence: None)
  Receive Date: 20081023
  Receipt Date: 20081008
  Transmission Date: 20090506
  Serious: Yes (Hospitalization)
  Sender: FDA-Public Use
  Company Number: 2008S1010020

PATIENT
  Age: 55 Year
  Sex: Female

DRUGS (1)
  1. PHOSPHOSODA FLAVOR NOT SPECIFIED [Suspect]
     Dosage: 15 ML; X1; PO
     Route: 048
     Dates: start: 20061113, end: 20061113

REACTIONS (8)
  - AGITATION [None]
  - ANAEMIA [None]
  - CONFUSIONAL STATE [None]
  - DEHYDRATION [None]
  - HYPERKALAEMIA [None]
  - HYPOVOLAEMIA [None]
  - MYOCLONUS [None]
  - RENAL FAILURE ACUTE [None]
